FAERS Safety Report 12637020 (Version 1)
Quarter: 2016Q3

REPORT INFORMATION
  Report Type: Spontaneous
  Country: TN (occurrence: TN)
  Receive Date: 20160809
  Receipt Date: 20160809
  Transmission Date: 20161109
  Serious: Yes (Hospitalization)
  Sender: FDA-Public Use
  Company Number: TN-FRESENIUS KABI-FK201605030

PATIENT
  Age: 50 Year
  Sex: Male

DRUGS (3)
  1. TERBUTALINE INJECTION (MANUFACTURER UNKNOWN) TERBUTALINE SULFATE) (TERBUTALINE SULFATE) [Suspect]
     Active Substance: TERBUTALINE
     Route: 055
  2. SALBUTAMOL [Suspect]
     Active Substance: ALBUTEROL
     Indication: ASTHMA
     Route: 055
     Dates: start: 201602
  3. TERBUTALINE INJECTION (MANUFACTURER UNKNOWN) TERBUTALINE SULFATE) (TERBUTALINE SULFATE) [Suspect]
     Active Substance: TERBUTALINE
     Indication: ASTHMA
     Route: 055
     Dates: start: 201504

REACTIONS (3)
  - Product use issue [Recovered/Resolved]
  - Asthma [Recovered/Resolved]
  - Respiratory failure [Recovered/Resolved]
